FAERS Safety Report 8177506-5 (Version None)
Quarter: 2012Q1

REPORT INFORMATION
  Report Type: 
  Country: None (occurrence: None)
  Receive Date: 20120301
  Receipt Date: 20120222
  Transmission Date: 20120608
  Serious: Yes (Hospitalization)
  Sender: FDA-Public Use
  Company Number: US-ACTELION-A-US2010-41172

PATIENT

DRUGS (6)
  1. REMODULIN [Concomitant]
  2. TRACLEER [Suspect]
     Dosage: 62.5 MG, BID
     Route: 048
     Dates: start: 20091103, end: 20090101
  3. LASIX [Concomitant]
  4. REVATIO [Concomitant]
  5. COUMADIN [Concomitant]
  6. TRACLEER [Suspect]
     Indication: PULMONARY ARTERIAL HYPERTENSION
     Dosage: 125 MG, BID
     Route: 048
     Dates: start: 20090101

REACTIONS (5)
  - PNEUMONIA [None]
  - DYSPNOEA [None]
  - SEPSIS [None]
  - DEVICE RELATED INFECTION [None]
  - PULMONARY OEDEMA [None]
